FAERS Safety Report 23679311 (Version 9)
Quarter: 2024Q3

REPORT INFORMATION
  Report Type: Report from Study
  Country: PT (occurrence: PT)
  Receive Date: 20240327
  Receipt Date: 20240713
  Transmission Date: 20241017
  Serious: Yes (Other)
  Sender: ABBVIE
  Company Number: PT-ABBVIE-5679932

PATIENT
  Age: 75 Year
  Sex: Female

DRUGS (14)
  1. CARBIDOPA\LEVODOPA [Suspect]
     Active Substance: CARBIDOPA\LEVODOPA
     Indication: Parkinson^s disease
     Dosage: 20 MG + 5 MG?FREQUENCY TEXT: MORNING:4ML;MAINTEN:1,7ML/H;EXTRA:1 ML?LAST ADMIN DATE: 2021
     Route: 050
     Dates: start: 20210630
  2. CARBIDOPA\LEVODOPA [Suspect]
     Active Substance: CARBIDOPA\LEVODOPA
     Dosage: 20 MG + 5 MG?FREQUENCY TEXT: MOR:9.5CC;MAINTEN:2.4CC/H;EXTRA:1.3CC
     Route: 050
     Dates: start: 2023, end: 202403
  3. CARBIDOPA\LEVODOPA [Suspect]
     Active Substance: CARBIDOPA\LEVODOPA
     Dosage: 20 MG + 5 MG?FREQUENCY TEXT: MOR:9.5CC;MAINTEN:2.4CC/H;EXTRA:1.3CC
     Route: 050
     Dates: start: 202404, end: 20240703
  4. CARBIDOPA\LEVODOPA [Suspect]
     Active Substance: CARBIDOPA\LEVODOPA
     Route: 050
  5. QUETIAPINE [Concomitant]
     Active Substance: QUETIAPINE
     Indication: Product used for unknown indication
     Dosage: START DATE : BEFORE DUODOPA
     Route: 065
  6. FLUCLOXACILLIN [Concomitant]
     Active Substance: FLUCLOXACILLIN
     Indication: Product used for unknown indication
     Dosage: FORM STRENGTH: 500 MILLIGRAM
     Dates: start: 202404
  7. SILVER NITRATE [Concomitant]
     Active Substance: SILVER NITRATE
     Indication: Granuloma
     Dates: start: 20240529
  8. FLUCONAZOLE [Concomitant]
     Active Substance: FLUCONAZOLE
     Indication: Stoma site erythema
     Dosage: FORM STRENGTH: 200 MILLIGRAM
     Dates: start: 202405
  9. CLOTRIMAZOLE [Concomitant]
     Active Substance: CLOTRIMAZOLE
     Indication: Candida infection
     Dates: start: 202403
  10. REQUIP [Concomitant]
     Active Substance: ROPINIROLE HYDROCHLORIDE
     Indication: Restless legs syndrome
     Dosage: 8 TABLETS IN THE MORNING + 8 TABLETS AT NIGHT?START DATE : BEFORE DUODOPA
     Route: 065
  11. ATORVASTATIN [Concomitant]
     Active Substance: ATORVASTATIN
     Indication: Product used for unknown indication
     Dosage: START DATE : BEFORE DUODOPA
     Route: 065
  12. TROLAMINE [Concomitant]
     Active Substance: TROLAMINE
     Indication: Granuloma
     Dosage: STOP DATE TEXT UNKNOWN
     Dates: start: 20240529
  13. FLOTIRAN [Concomitant]
     Indication: Product used for unknown indication
     Dates: start: 20240423
  14. COSMETICS [Concomitant]
     Active Substance: COSMETICS
     Indication: Product used for unknown indication
     Dates: start: 20240423

REACTIONS (5)
  - Candida infection [Recovered/Resolved]
  - Stoma site discharge [Recovered/Resolved]
  - Stoma site erythema [Recovered/Resolved]
  - Granuloma [Recovering/Resolving]
  - Stoma site oedema [Recovered/Resolved]

NARRATIVE: CASE EVENT DATE: 20240301
